FAERS Safety Report 23248187 (Version 1)
Quarter: 2023Q4

REPORT INFORMATION
  Report Type: Spontaneous
  Country: JP (occurrence: JP)
  Receive Date: 20231130
  Receipt Date: 20231130
  Transmission Date: 20240109
  Serious: No
  Sender: FDA-Public Use
  Company Number: JP-BEH-2023165740

PATIENT
  Age: 8 Decade
  Sex: Male

DRUGS (2)
  1. IDELVION [Suspect]
     Active Substance: COAGULATION FACTOR IX RECOMBINANT HUMAN
     Indication: Cerebral haemorrhage
     Dosage: 3000 INTERNATIONAL UNIT, QW
     Route: 042
     Dates: start: 202211, end: 20221201
  2. IDELVION [Suspect]
     Active Substance: COAGULATION FACTOR IX RECOMBINANT HUMAN
     Indication: Cerebral haemorrhage
     Dosage: 3000 INTERNATIONAL UNIT, QW
     Route: 042
     Dates: start: 202211, end: 20221201

REACTIONS (1)
  - Infection [Fatal]
